FAERS Safety Report 6236637-7 (Version None)
Quarter: 2009Q2

REPORT INFORMATION
  Report Type: 
  Country: None (occurrence: None)
  Receive Date: 20090619
  Receipt Date: 20080922
  Transmission Date: 20091009
  Serious: No
  Sender: FDA-Public Use
  Company Number: US-ASTRAZENECA-2008UW19767

PATIENT
  Age: 92 Year
  Sex: Male
  Weight: 77.1 kg

DRUGS (4)
  1. ATACAND [Suspect]
     Indication: HYPERTENSION
     Route: 048
  2. LYRICA [Concomitant]
  3. AVANDIA [Concomitant]
  4. CRESTOR [Concomitant]
     Route: 048

REACTIONS (2)
  - FEELING ABNORMAL [None]
  - RASH MACULAR [None]
